FAERS Safety Report 6542790-8 (Version None)
Quarter: 2010Q1

REPORT INFORMATION
  Report Type: 
  Country: None (occurrence: None)
  Receive Date: 20100114
  Receipt Date: 20091230
  Transmission Date: 20100710
  Serious: Yes (Other)
  Sender: FDA-Public Use
  Company Number: 09-002012

PATIENT
  Age: 18 Year
  Sex: Female
  Weight: 95.2 kg

DRUGS (2)
  1. LOESTRIN 24 FE [Suspect]
     Indication: OVARIAN CYST
     Dosage: 20/1000 UG, ORAL
     Route: 048
     Dates: start: 20091001, end: 20091217
  2. LISINOPRIL (LISINOPRIL DIHYDRATE) [Concomitant]

REACTIONS (4)
  - ADNEXA UTERI PAIN [None]
  - CRYING [None]
  - HAEMORRHOIDAL HAEMORRHAGE [None]
  - OVARIAN CYST [None]
